FAERS Safety Report 9887448 (Version 2)
Quarter: 2013Q4

REPORT INFORMATION
  Report Type: Spontaneous
  Country: US (occurrence: None)
  Receive Date: 20131223
  Receipt Date: 20131223
  Transmission Date: 20140711
  Serious: Yes (Other)
  Sender: FDA-Public Use
  Company Number: 218612LEO

PATIENT
  Age: 55 Year
  Sex: Female

DRUGS (2)
  1. PICATO [Suspect]
     Indication: ACTINIC KERATOSIS
     Route: 061
     Dates: start: 201208, end: 201208
  2. NIASPAN [Concomitant]

REACTIONS (9)
  - Application site pain [None]
  - Application site inflammation [None]
  - Application site vesicles [None]
  - Periorbital oedema [None]
  - Application site reaction [None]
  - Application site erosion [None]
  - Burning sensation [None]
  - Application site erythema [None]
  - Application site erythema [None]
